FAERS Safety Report 25019182 (Version 2)
Quarter: 2025Q1

REPORT INFORMATION
  Report Type: Spontaneous
  Country: US (occurrence: US)
  Receive Date: 20250227
  Receipt Date: 20250315
  Transmission Date: 20250409
  Serious: No
  Sender: ABBVIE
  Company Number: US-ABBVIE-6143568

PATIENT
  Age: 39 Year
  Sex: Female

DRUGS (1)
  1. LILETTA [Suspect]
     Active Substance: LEVONORGESTREL
     Indication: Product used for unknown indication
     Route: 015
     Dates: start: 20250131

REACTIONS (4)
  - Uterine pain [Unknown]
  - Device breakage [Unknown]
  - Device issue [Unknown]
  - Device expulsion [Unknown]

NARRATIVE: CASE EVENT DATE: 20250101
